FAERS Safety Report 6610953-9 (Version None)
Quarter: 2010Q1

REPORT INFORMATION
  Report Type: 
  Country: None (occurrence: None)
  Receive Date: 20100222
  Receipt Date: 20100207
  Transmission Date: 20100710
  Serious: Yes (Hospitalization)
  Sender: FDA-Public Use
  Company Number: 006389

PATIENT
  Sex: Female

DRUGS (7)
  1. CERTOLIZUMAB PEGOL (CERTOLIZUMAB PEGOL) [Suspect]
     Indication: RHEUMATOID ARTHRITIS
     Dosage: (200 MG, EVERY TWO WEEKS SUBCUTANEOUS)
     Route: 058
     Dates: start: 20090427
  2. METHOTREXATE [Concomitant]
  3. FOLIC ACID [Concomitant]
  4. CELECOXIN [Concomitant]
  5. RIBOFLAVIN TAB [Concomitant]
  6. PREGNISOLONE [Concomitant]
  7. REBAMIPIDE [Concomitant]

REACTIONS (9)
  - BRONCHITIS [None]
  - CHILLS [None]
  - DRUG INEFFECTIVE [None]
  - H1N1 INFLUENZA [None]
  - HYPOAESTHESIA [None]
  - INFLUENZA [None]
  - NAUSEA [None]
  - TREMOR [None]
  - WHITE BLOOD CELL COUNT INCREASED [None]
